FAERS Safety Report 14495005 (Version 3)
Quarter: 2018Q2

REPORT INFORMATION
  Report Type: Spontaneous
  Country: US (occurrence: US)
  Receive Date: 20180206
  Receipt Date: 20180410
  Transmission Date: 20180711
  Serious: No
  Sender: FDA-Public Use
  Company Number: US-009507513-1802USA002507

PATIENT
  Age: 34 Year
  Sex: Female
  Weight: 102.4 kg

DRUGS (1)
  1. NEXPLANON [Suspect]
     Active Substance: ETONOGESTREL
     Indication: CONTRACEPTION
     Dosage: 1 ROD
     Route: 059
     Dates: start: 20160229, end: 20180129

REACTIONS (5)
  - Medical device discomfort [Unknown]
  - Device kink [Recovered/Resolved]
  - Implant site pain [Unknown]
  - Complication of device removal [Recovered/Resolved]
  - Device breakage [Recovered/Resolved]

NARRATIVE: CASE EVENT DATE: 20180129
